FAERS Safety Report 7419975-1 (Version None)
Quarter: 2011Q2

REPORT INFORMATION
  Report Type: 
  Country: None (occurrence: None)
  Receive Date: 20110413
  Receipt Date: 20110413
  Transmission Date: 20111010
  Serious: Yes (Disabling, Other)
  Sender: FDA-Public Use
  Company Number: None

PATIENT
  Age: 72 Year
  Sex: Female
  Weight: 72.5755 kg

DRUGS (1)
  1. RECLAST [Suspect]
     Indication: OSTEOPOROSIS
     Dosage: INFUSION 15 MIN - ONCE
     Dates: start: 20110224

REACTIONS (8)
  - PAIN IN JAW [None]
  - INSOMNIA [None]
  - HEADACHE [None]
  - URTICARIA [None]
  - PAIN IN EXTREMITY [None]
  - STOMATITIS [None]
  - ARTHRALGIA [None]
  - RHEUMATOID ARTHRITIS [None]
